FAERS Safety Report 11469853 (Version 1)
Quarter: 2015Q3

REPORT INFORMATION
  Report Type: Spontaneous
  Country: TR (occurrence: TR)
  Receive Date: 20150908
  Receipt Date: 20150908
  Transmission Date: 20151125
  Serious: Yes (Other)
  Sender: FDA-Public Use
  Company Number: TR-MYLANLABS-TR2013145290

PATIENT

DRUGS (1)
  1. DEXAMETHASONE. [Suspect]
     Active Substance: DEXAMETHASONE
     Indication: UPPER AIRWAY OBSTRUCTION
     Dosage: 0.5 MG/KG
     Route: 042

REACTIONS (1)
  - Hypertrophic cardiomyopathy [Recovered/Resolved]
